FAERS Safety Report 10024794 (Version 2)
Quarter: 2014Q1

REPORT INFORMATION
  Report Type: Spontaneous
  Country: TW (occurrence: TW)
  Receive Date: 20140320
  Receipt Date: 20140320
  Transmission Date: 20141002
  Serious: Yes (Other)
  Sender: FDA-Public Use
  Company Number: TW-BAXTER-2014BAX012254

PATIENT
  Age: 48 Year
  Sex: Female

DRUGS (5)
  1. DIANEAL PD-2, PERITONEAL DIALYSIS SOLUTION WITH 1.5% DEXTROSE ^BAXTER^ [Suspect]
     Indication: PERITONEAL DIALYSIS
     Route: 065
  2. DIANEAL PD-2, PERITONEAL DIALYSIS SOLUTION WITH 2.5% DEXTROSE ^BAXTER^ [Suspect]
     Indication: PERITONEAL DIALYSIS
     Route: 065
  3. HYDRALAZINE [Concomitant]
     Indication: PRODUCT USED FOR UNKNOWN INDICATION
     Dosage: FOR THE PAST THREE MONTHS AND DISCONTINUED ON AN UNKNOWN DATE
     Route: 065
  4. CEFAZOLIN [Concomitant]
     Indication: ANTIBIOTIC THERAPY
     Route: 033
  5. PREDNISONE [Concomitant]
     Indication: PRODUCT USED FOR UNKNOWN INDICATION
     Dosage: DISCONTINUED ON AN UNKNOWN DATE
     Route: 048

REACTIONS (3)
  - Polyarthritis [Unknown]
  - Peritoneal cloudy effluent [Recovered/Resolved]
  - Lupus-like syndrome [Unknown]
